FAERS Safety Report 7855155-3 (Version None)
Quarter: 2011Q4

REPORT INFORMATION
  Report Type: 
  Country: None (occurrence: None)
  Receive Date: 20111026
  Receipt Date: 20111011
  Transmission Date: 20120403
  Serious: Yes (Other)
  Sender: FDA-Public Use
  Company Number: CA-WATSON-2011-16966

PATIENT

DRUGS (2)
  1. CLOPIDEGREL [Suspect]
     Indication: PERCUTANEOUS CORONARY INTERVENTION
     Dosage: 300-600 MG FOR FOUR WEEKS TO 12 MONTHS
     Route: 048
  2. TICLOPIDINE HCL [Suspect]
     Indication: SKIN TEST
     Route: 058

REACTIONS (5)
  - HYPERSENSITIVITY [None]
  - PARAKERATOSIS [None]
  - SKIN OEDEMA [None]
  - SKIN TEST POSITIVE [None]
  - PERIVASCULAR DERMATITIS [None]
